FAERS Safety Report 11235770 (Version 1)
Quarter: 2015Q3

REPORT INFORMATION
  Report Type: Spontaneous
  Country: CA (occurrence: CA)
  Receive Date: 20150702
  Receipt Date: 20150702
  Transmission Date: 20151125
  Serious: Yes (Other)
  Sender: FDA-Public Use
  Company Number: CA-TEVA-574518USA

PATIENT
  Age: 48 Year
  Sex: Female
  Weight: 72.64 kg

DRUGS (1)
  1. SEASONIQUE [Suspect]
     Active Substance: ETHINYL ESTRADIOL\LEVONORGESTREL
     Indication: CONTRACEPTION
     Route: 065

REACTIONS (2)
  - Haemorrhage [Unknown]
  - Abdominal pain [Unknown]
